FAERS Safety Report 6144987-8 (Version None)
Quarter: 2009Q2

REPORT INFORMATION
  Report Type: 
  Country: None (occurrence: None)
  Receive Date: 20090402
  Receipt Date: 20090402
  Transmission Date: 20091009
  Serious: Yes (Life-Threatening)
  Sender: FDA-Public Use
  Company Number: None

PATIENT
  Age: 39 Year
  Sex: Female
  Weight: 55.7924 kg

DRUGS (1)
  1. INFED [Suspect]
     Indication: IRON DEFICIENCY
     Dosage: JUST A FEW MG IV DRIP
     Route: 041
     Dates: start: 20090330, end: 20090330

REACTIONS (3)
  - ANAPHYLACTIC SHOCK [None]
  - HYPERSENSITIVITY [None]
  - INFUSION RELATED REACTION [None]
